FAERS Safety Report 4969273-0 (Version None)
Quarter: 2006Q2

REPORT INFORMATION
  Report Type: 
  Country: None (occurrence: None)
  Receive Date: 20060405
  Receipt Date: 20060324
  Transmission Date: 20061013
  Serious: Yes (Hospitalization)
  Sender: FDA-Public Use
  Company Number: 430042N05USA

PATIENT
  Age: 52 Year
  Sex: Male
  Weight: 82.6 kg

DRUGS (9)
  1. NOVANTRONE [Suspect]
     Indication: MULTIPLE SCLEROSIS
     Dosage: 3 DOSAGE FORMS
     Dates: start: 20021105, end: 20030806
  2. INTERFERON BETA [Concomitant]
  3. MORNIFLUMATE [Concomitant]
  4. BACLOFEN [Concomitant]
  5. AMANTADINE HCL [Concomitant]
  6. NITROFURANTOIN [Concomitant]
  7. NORTRIPTYLINE HCL [Concomitant]
  8. OXYBUTYNIN HYDROCHLORIDE [Concomitant]
  9. ASPIRIN [Concomitant]

REACTIONS (9)
  - AORTIC VALVE INCOMPETENCE [None]
  - CARDIOMYOPATHY [None]
  - DILATATION VENTRICULAR [None]
  - EJECTION FRACTION DECREASED [None]
  - ELECTROCARDIOGRAM ST-T CHANGE [None]
  - MITRAL VALVE INCOMPETENCE [None]
  - SINUS TACHYCARDIA [None]
  - TRICUSPID VALVE INCOMPETENCE [None]
  - TROPONIN INCREASED [None]
